FAERS Safety Report 21118541 (Version 1)
Quarter: 2022Q3

REPORT INFORMATION
  Report Type: Spontaneous
  Country: ES (occurrence: ES)
  Receive Date: 20220722
  Receipt Date: 20220722
  Transmission Date: 20221026
  Serious: Yes (Death)
  Sender: FDA-Public Use
  Company Number: None

PATIENT
  Age: 68 Year
  Sex: Female

DRUGS (5)
  1. FLUOROURACIL [Interacting]
     Active Substance: FLUOROURACIL
     Indication: Colon cancer
     Dates: start: 20210510
  2. BRIVUDINE [Interacting]
     Active Substance: BRIVUDINE
     Indication: Herpes zoster
     Dosage: STRENGTH: 125 MG TABLETS
     Dates: start: 20210511, end: 20210515
  3. LEUCOVORIN [Concomitant]
     Active Substance: LEUCOVORIN
  4. IRINOTECAN [Concomitant]
     Active Substance: IRINOTECAN
     Indication: Colon cancer
     Dates: start: 20210510
  5. AFLIBERCEPT [Concomitant]
     Active Substance: AFLIBERCEPT

REACTIONS (5)
  - Drug interaction [Fatal]
  - Thrombocytopenia [Fatal]
  - Neutropenia [Fatal]
  - Mucosal inflammation [Fatal]
  - Cerebral haemorrhage [Fatal]

NARRATIVE: CASE EVENT DATE: 20210515
